FAERS Safety Report 7728321-5 (Version None)
Quarter: 2011Q3

REPORT INFORMATION
  Report Type: 
  Country: None (occurrence: None)
  Receive Date: 20110905
  Receipt Date: 20110830
  Transmission Date: 20111222
  Serious: Yes (Other)
  Sender: FDA-Public Use
  Company Number: PHEH2010US03123

PATIENT
  Sex: Male

DRUGS (10)
  1. ZOMETA [Suspect]
     Dates: start: 20030101, end: 20090101
  2. DEXAMETHASONE [Suspect]
     Dosage: 20 MG, QW
     Dates: start: 20080301, end: 20080901
  3. ALBUTEROL SULFATE AUTOHALER [Concomitant]
  4. AVELOX [Concomitant]
     Dosage: 400 MG,
  5. LEVAQUIN [Concomitant]
     Dosage: 500 MG,
     Route: 042
  6. LORA TAB [Concomitant]
  7. ULTRACET [Concomitant]
  8. HUMIBID [Concomitant]
  9. REVLIMID [Suspect]
     Dates: start: 20070901, end: 20080301
  10. FERROUS SULFATE TAB [Concomitant]

REACTIONS (54)
  - AORTIC DISORDER [None]
  - OSTEONECROSIS OF JAW [None]
  - PULMONARY EMBOLISM [None]
  - ABSCESS LIMB [None]
  - OSTEOPENIA [None]
  - ACQUIRED DIAPHRAGMATIC EVENTRATION [None]
  - LYMPHADENOPATHY [None]
  - INFECTION [None]
  - INTERVERTEBRAL DISC DEGENERATION [None]
  - OSTEOARTHRITIS [None]
  - ROTATOR CUFF SYNDROME [None]
  - ANAEMIA [None]
  - COMPRESSION FRACTURE [None]
  - BACK PAIN [None]
  - ERYTHEMA [None]
  - PLEURAL EFFUSION [None]
  - LUNG INFILTRATION [None]
  - GANGRENE [None]
  - ATRIAL FIBRILLATION [None]
  - ANXIETY [None]
  - SCOLIOSIS [None]
  - INTERVERTEBRAL DISC PROTRUSION [None]
  - HAEMOPTYSIS [None]
  - CEREBROVASCULAR ACCIDENT [None]
  - CELLULITIS [None]
  - HYPOAESTHESIA [None]
  - CARDIOMEGALY [None]
  - DEFORMITY [None]
  - HYPOXIA [None]
  - LUMBAR SPINAL STENOSIS [None]
  - ATROPHY [None]
  - CARDIAC FAILURE [None]
  - EMOTIONAL DISTRESS [None]
  - HAND FRACTURE [None]
  - PANCYTOPENIA [None]
  - MUSCULOSKELETAL PAIN [None]
  - CHEST PAIN [None]
  - NEUROPATHY PERIPHERAL [None]
  - BUNDLE BRANCH BLOCK RIGHT [None]
  - PAIN [None]
  - INJURY [None]
  - ATELECTASIS [None]
  - OSTEONECROSIS [None]
  - DIARRHOEA [None]
  - JOINT SWELLING [None]
  - TENDERNESS [None]
  - PNEUMONIA [None]
  - RIB FRACTURE [None]
  - OSTEOSCLEROSIS [None]
  - DYSPLASTIC NAEVUS [None]
  - MONOCLONAL IMMUNOGLOBULIN PRESENT [None]
  - GOUT [None]
  - RENAL FAILURE [None]
  - HYPERCALCAEMIA [None]
